FAERS Safety Report 9343389 (Version 1)
Quarter: 2013Q2

REPORT INFORMATION
  Report Type: Spontaneous
  Country: BR (occurrence: BR)
  Receive Date: 20130612
  Receipt Date: 20130612
  Transmission Date: 20140414
  Serious: Yes (Other)
  Sender: FDA-Public Use
  Company Number: BR-AMGEN-BRASP2013040935

PATIENT
  Age: 50 Year
  Sex: Male
  Weight: 53 kg

DRUGS (10)
  1. ENBREL [Suspect]
     Indication: ANKYLOSING SPONDYLITIS
     Dosage: UNK
     Route: 065
     Dates: start: 2008
  2. ENBREL [Suspect]
     Dosage: 50 MG, ONCE WEEKLY
     Route: 058
     Dates: start: 201012
  3. DEXAMETHASONE [Concomitant]
     Dosage: UNK
  4. MINERAL OIL LIGHT [Concomitant]
     Dosage: UNK
  5. OMEPRAZOLE [Concomitant]
     Dosage: UNK
  6. AAS [Concomitant]
     Dosage: UNK
  7. DIPYRONE [Concomitant]
     Dosage: UNK
  8. DICLOFENAC [Concomitant]
     Dosage: UNK
  9. AMLODIPINE [Concomitant]
     Dosage: UNK
  10. CORTITOP [Concomitant]
     Dosage: UNK

REACTIONS (2)
  - Cataract [Unknown]
  - Hypersensitivity [Not Recovered/Not Resolved]
